FAERS Safety Report 5080064-5 (Version None)
Quarter: 2006Q3

REPORT INFORMATION
  Report Type: 
  Country: None (occurrence: None)
  Receive Date: 20060815
  Receipt Date: 20060804
  Transmission Date: 20061208
  Serious: Yes (Hospitalization)
  Sender: FDA-Public Use
  Company Number: GB-JNJFOC-20060801945

PATIENT
  Age: 27 Year
  Sex: Female

DRUGS (3)
  1. TOPAMAX [Suspect]
     Indication: EPILEPSY
     Route: 048
  2. ACUPUNCTURE [Concomitant]
     Indication: ENDOMETRIOSIS
  3. CHINESE HERBAL REMEDY [Concomitant]

REACTIONS (2)
  - ENDOMETRIOSIS [None]
  - STATUS EPILEPTICUS [None]
